FAERS Safety Report 12309875 (Version 1)
Quarter: 2016Q2

REPORT INFORMATION
  Report Type: Spontaneous
  Country: US (occurrence: None)
  Receive Date: 20160426
  Receipt Date: 20160426
  Transmission Date: 20160815
  Serious: Yes (Hospitalization, Other)
  Sender: FDA-Public Use
  Company Number: None

PATIENT
  Age: 26 Year
  Sex: Male
  Weight: 95.26 kg

DRUGS (5)
  1. PRO BIOTIC [Concomitant]
  2. MAGNESIUM [Concomitant]
     Active Substance: MAGNESIUM
  3. VITAMIN B12 [Concomitant]
     Active Substance: CYANOCOBALAMIN
  4. LOSARTAN. [Suspect]
     Active Substance: LOSARTAN
     Indication: HYPERTENSION
     Dosage: 20 TABLET)S) ONCE A DAY TAKEN BY MOUTH
     Route: 048
     Dates: start: 20160325, end: 20160421
  5. MELTONIN [Concomitant]

REACTIONS (4)
  - Anxiety [None]
  - Hypoaesthesia [None]
  - Partial seizures [None]
  - Panic attack [None]

NARRATIVE: CASE EVENT DATE: 20160325
